FAERS Safety Report 18881883 (Version 1)
Quarter: 2021Q1

REPORT INFORMATION
  Report Type: Spontaneous
  Country: US (occurrence: US)
  Receive Date: 20210212
  Receipt Date: 20210212
  Transmission Date: 20210420
  Serious: No
  Sender: FDA-Public Use
  Company Number: US-ALVOGEN-2020-ALVOGEN-115164

PATIENT
  Age: 46 Year
  Sex: Female

DRUGS (1)
  1. BUPRENORPHINE/NALOXONE [Suspect]
     Active Substance: BUPRENORPHINE\NALOXONE
     Indication: PRODUCT USED FOR UNKNOWN INDICATION

REACTIONS (6)
  - Urticaria [Unknown]
  - Nausea [Unknown]
  - Restless legs syndrome [Unknown]
  - Headache [Unknown]
  - Withdrawal syndrome [Unknown]
  - Illness [Unknown]
